FAERS Safety Report 10627242 (Version 1)
Quarter: 2014Q4

REPORT INFORMATION
  Report Type: Report from Study
  Country: BR (occurrence: BR)
  Receive Date: 20141204
  Receipt Date: 20141204
  Transmission Date: 20150529
  Serious: Yes (Other)
  Sender: FDA-Public Use
  Company Number: BR-GLAXOSMITHKLINE-BR2014GSK028768

PATIENT
  Age: 78 Year
  Sex: Male
  Weight: 67 kg

DRUGS (1)
  1. FLUTICASONE PROPIONATE+SALMETEROL XINAFOATE [Suspect]
     Active Substance: FLUTICASONE PROPIONATE\SALMETEROL XINAFOATE
     Indication: SINUSITIS
     Dosage: 1 APPLICATION(S), BID
     Route: 055
     Dates: end: 20141127

REACTIONS (6)
  - Malaise [Not Recovered/Not Resolved]
  - Hypertension [Recovered/Resolved]
  - Influenza [Not Recovered/Not Resolved]
  - Urinary retention [Recovered/Resolved]
  - Prostatic operation [Unknown]
  - Off label use [Recovered/Resolved]

NARRATIVE: CASE EVENT DATE: 20141105
